FAERS Safety Report 19286334 (Version 1)
Quarter: 2021Q2

REPORT INFORMATION
  Report Type: Spontaneous
  Country: US (occurrence: US)
  Receive Date: 20210521
  Receipt Date: 20210521
  Transmission Date: 20210717
  Serious: No
  Sender: FDA-Public Use
  Company Number: US-GLAXOSMITHKLINE-US2016GSK203317

PATIENT

DRUGS (2)
  1. BENLYSTA [Suspect]
     Active Substance: BELIMUMAB
     Indication: SYSTEMIC LUPUS ERYTHEMATOSUS
     Dosage: 730 MG, Z (ONCE A MONTH)
     Route: 042
     Dates: start: 20160720
  2. METHOTREXATE. [Suspect]
     Active Substance: METHOTREXATE
     Indication: SLE ARTHRITIS
     Dosage: 20 MG, WE
     Route: 048
     Dates: start: 20150710

REACTIONS (1)
  - Subcutaneous abscess [Recovered/Resolved]

NARRATIVE: CASE EVENT DATE: 20160722
